FAERS Safety Report 5540625-3 (Version None)
Quarter: 2007Q4

REPORT INFORMATION
  Report Type: 
  Country: None (occurrence: None)
  Receive Date: 20071129
  Receipt Date: 20070424
  Transmission Date: 20080405
  Serious: Yes (Hospitalization, Other)
  Sender: FDA-Public Use
  Company Number: US200703002420

PATIENT
  Age: 42 Year
  Sex: Male
  Weight: 135.6 kg

DRUGS (3)
  1. ZYPREXA [Suspect]
     Dosage: 15 MG, 20 M G
     Dates: start: 20040201, end: 20050601
  2. ABILIFY [Concomitant]
  3. DEPAKOTE [Concomitant]

REACTIONS (7)
  - BLOOD CHOLESTEROL INCREASED [None]
  - DIABETES MELLITUS [None]
  - DIABETIC COMA [None]
  - DIABETIC KETOACIDOSIS [None]
  - HYPERTENSION [None]
  - METABOLIC DISORDER [None]
  - PANCREATITIS [None]
